FAERS Safety Report 7969550-5 (Version None)
Quarter: 2011Q4

REPORT INFORMATION
  Report Type: 
  Country: None (occurrence: None)
  Receive Date: 20111212
  Receipt Date: 20111208
  Transmission Date: 20120403
  Serious: Yes (Other)
  Sender: FDA-Public Use
  Company Number: US-PFIZER INC-2011300823

PATIENT
  Sex: Female
  Weight: 54.422 kg

DRUGS (2)
  1. ZOLOFT [Suspect]
     Indication: PANIC ATTACK
     Dosage: 12.5 MG, 2X/DAY
     Dates: start: 20111125
  2. METHYLFOLATE [Concomitant]
     Indication: PANIC ATTACK
     Dosage: UNK

REACTIONS (2)
  - PANIC ATTACK [None]
  - MENORRHAGIA [None]
